FAERS Safety Report 7833228-9 (Version None)
Quarter: 2011Q4

REPORT INFORMATION
  Report Type: 
  Country: None (occurrence: None)
  Receive Date: 20111024
  Receipt Date: 20111016
  Transmission Date: 20120403
  Serious: Yes (Other)
  Sender: FDA-Public Use
  Company Number: US-PFIZER INC-2011253996

PATIENT
  Sex: Male

DRUGS (2)
  1. EFFEXOR [Suspect]
     Indication: DEPRESSION
     Dosage: UNK
     Route: 048
  2. EFFEXOR [Suspect]
     Indication: GENERALISED ANXIETY DISORDER

REACTIONS (7)
  - TEMPERATURE REGULATION DISORDER [None]
  - ANGER [None]
  - WITHDRAWAL SYNDROME [None]
  - AGGRESSION [None]
  - MOOD SWINGS [None]
  - CRYING [None]
  - HEADACHE [None]
